FAERS Safety Report 7742631-7 (Version None)
Quarter: 2011Q3

REPORT INFORMATION
  Report Type: 
  Country: None (occurrence: None)
  Receive Date: 20110831
  Receipt Date: 20110825
  Transmission Date: 20111222
  Serious: Yes (Other)
  Sender: FDA-Public Use
  Company Number: A0942248A

PATIENT
  Age: 47 Year
  Sex: Female

DRUGS (2)
  1. ASPIRIN + CAFFEINE + PARACETAMOL (FORMULATION UNKNOWN) (ACETAMINOPHEN [Suspect]
  2. ASPIRIN + CAFFEINE + SALICYLAMIDE (FORMULATION UNKNOWN) (ASPIRIN+CAFFE [Suspect]

REACTIONS (9)
  - INITIAL INSOMNIA [None]
  - TINNITUS [None]
  - BONE PAIN [None]
  - EAR DISCOMFORT [None]
  - DEAFNESS [None]
  - PRODUCT QUALITY ISSUE [None]
  - HYPOACUSIS [None]
  - PARANASAL SINUS HYPERSECRETION [None]
  - MIDDLE EAR EFFUSION [None]
